FAERS Safety Report 18619447 (Version 8)
Quarter: 2024Q1

REPORT INFORMATION
  Report Type: Spontaneous
  Country: US (occurrence: US)
  Receive Date: 20201215
  Receipt Date: 20240201
  Transmission Date: 20240410
  Serious: Yes (Other)
  Sender: FDA-Public Use
  Company Number: US-PFIZER INC-2020493900

PATIENT
  Age: 71 Year
  Sex: Female
  Weight: 63.96 kg

DRUGS (2)
  1. IBRANCE [Suspect]
     Active Substance: PALBOCICLIB
     Indication: Breast cancer metastatic
     Dosage: ONCE DAILY FOR 28 DAY SUPPLY
     Route: 048
  2. IBRANCE [Suspect]
     Active Substance: PALBOCICLIB
     Dosage: ONCE DAILY FOR 21 DAYS FOLLOWED BY 7 DAYS OFF, 28 DAY SUPPLY
     Route: 048

REACTIONS (4)
  - Uterine cyst [Unknown]
  - Product dose omission issue [Unknown]
  - Feeling abnormal [Unknown]
  - Alopecia [Unknown]

NARRATIVE: CASE EVENT DATE: 20210101
